FAERS Safety Report 14406232 (Version 1)
Quarter: 2018Q1

REPORT INFORMATION
  Report Type: Spontaneous
  Country: DE (occurrence: DE)
  Receive Date: 20180118
  Receipt Date: 20180118
  Transmission Date: 20180509
  Serious: Yes (Death)
  Sender: FDA-Public Use
  Company Number: DE-PFIZER INC-2017519224

PATIENT
  Age: 7 Decade
  Sex: Male

DRUGS (2)
  1. TAVOR EXPIDET [Suspect]
     Active Substance: LORAZEPAM
     Indication: PANIC ATTACK
  2. TAVOR EXPIDET [Suspect]
     Active Substance: LORAZEPAM
     Indication: ANXIETY
     Dosage: UNK, AS NEEDED
     Dates: start: 201711

REACTIONS (4)
  - Weight decreased [Unknown]
  - Drug prescribing error [Unknown]
  - Death [Fatal]
  - Drug ineffective [Unknown]
